FAERS Safety Report 7156729-8 (Version None)
Quarter: 2010Q4

REPORT INFORMATION
  Report Type: 
  Country: None (occurrence: None)
  Receive Date: 20101214
  Receipt Date: 20100108
  Transmission Date: 20110411
  Serious: No
  Sender: FDA-Public Use
  Company Number: US-ASTRAZENECA-2009SE30372

PATIENT
  Age: 88 Year
  Sex: Female

DRUGS (10)
  1. CRESTOR [Suspect]
     Indication: BLOOD CHOLESTEROL INCREASED
     Route: 048
     Dates: start: 20070426, end: 20071022
  2. CRESTOR [Suspect]
     Indication: BLOOD PRESSURE INCREASED
     Route: 048
     Dates: start: 20070426, end: 20071022
  3. CRESTOR [Suspect]
     Indication: CAROTID ARTERIOSCLEROSIS
     Route: 048
     Dates: start: 20070426, end: 20071022
  4. CRESTOR [Suspect]
     Route: 048
     Dates: start: 20091113
  5. CRESTOR [Suspect]
     Route: 048
     Dates: start: 20091113
  6. CRESTOR [Suspect]
     Route: 048
     Dates: start: 20091113
  7. COREG [Concomitant]
     Indication: BLOOD PRESSURE
  8. KAPIDEX [Concomitant]
     Indication: GASTROOESOPHAGEAL REFLUX DISEASE
  9. HYDROCHLOROTHIAZIDE [Concomitant]
     Indication: BLOOD PRESSURE
  10. CARDURA [Concomitant]
     Indication: BLOOD PRESSURE

REACTIONS (2)
  - HYPOAESTHESIA [None]
  - MUSCULAR WEAKNESS [None]
